FAERS Safety Report 22843278 (Version 3)
Quarter: 2023Q4

REPORT INFORMATION
  Report Type: Spontaneous
  Country: DE (occurrence: DE)
  Receive Date: 20230821
  Receipt Date: 20231215
  Transmission Date: 20240110
  Serious: Yes (Death, Hospitalization, Other)
  Sender: FDA-Public Use
  Company Number: DE-BAXTER-2023BAX026306

PATIENT
  Age: 6 Year
  Sex: Male
  Weight: 17 kg

DRUGS (10)
  1. CALCIUM CL\DEXTROSE\MAGNESIUM CL\SODIUM BICAR\SODIUM CL\SODIUM LACT [Suspect]
     Active Substance: CALCIUM CHLORIDE\DEXTROSE MONOHYDRATE\MAGNESIUM CHLORIDE\SODIUM BICARBONATE\SODIUM CHLORIDE\SODIUM L
     Route: 033
  2. SEVELAMER CARBONATE [Concomitant]
     Active Substance: SEVELAMER CARBONATE
     Dosage: 2.4 G
     Route: 048
  3. CALCIUM CARBONATE [Concomitant]
     Active Substance: CALCIUM CARBONATE
     Dosage: THREE TIMES A TABLET
     Route: 048
  4. NORDITROPIN [Concomitant]
     Active Substance: SOMATROPIN
     Dosage: 0.8 MG
     Route: 058
  5. EPOETIN BETA [Concomitant]
     Active Substance: ERYTHROPOIETIN
     Dosage: 3000 UNITS PER WEEK
     Route: 058
  6. LEVOTHYROXINE [Concomitant]
     Active Substance: LEVOTHYROXINE
     Indication: Hypothyroidism
     Dosage: 25 MCG
     Route: 048
  7. FUROSEMIDE [Concomitant]
     Active Substance: FUROSEMIDE
     Indication: Polyuria
     Dosage: 2.5 MG TWICE
     Route: 048
  8. IRON [Concomitant]
     Active Substance: IRON
     Indication: Anaemia
     Dosage: 40 MG
     Route: 048
  9. CINACALCET [Concomitant]
     Active Substance: CINACALCET
     Indication: Hyperparathyroidism
     Dosage: 30 MG
     Route: 048
  10. ALFACALCIDOL [Concomitant]
     Active Substance: ALFACALCIDOL
     Dosage: 0.3 MCG
     Route: 048

REACTIONS (7)
  - Death [Fatal]
  - Cardiac arrest [Unknown]
  - Resuscitation [Unknown]
  - Azotaemia [Unknown]
  - Hyperkalaemia [Unknown]
  - Inadequate peritoneal dialysis [Unknown]
  - Product dose omission issue [Unknown]

NARRATIVE: CASE EVENT DATE: 20230709
